FAERS Safety Report 7349549-2 (Version None)
Quarter: 2011Q1

REPORT INFORMATION
  Report Type: 
  Country: None (occurrence: None)
  Receive Date: 20110314
  Receipt Date: 20110214
  Transmission Date: 20110831
  Serious: No
  Sender: FDA-Public Use
  Company Number: US-B.I. PHARMACEUTICALS,INC./RIDGEFIELD-2011-BP-05424BP

PATIENT
  Age: 76 Year
  Sex: Female

DRUGS (3)
  1. COUMADIN [Concomitant]
     Dates: end: 20110101
  2. PRADAXA [Suspect]
     Route: 048
     Dates: start: 20110101
  3. VOLTAREN [Suspect]
     Indication: ARTHRITIS
     Route: 061

REACTIONS (1)
  - OEDEMA PERIPHERAL [None]
